FAERS Safety Report 5120366-7 (Version None)
Quarter: 2006Q4

REPORT INFORMATION
  Report Type: 
  Country: None (occurrence: None)
  Receive Date: 20061002
  Receipt Date: 20060921
  Transmission Date: 20070319
  Serious: Yes (Other)
  Sender: FDA-Public Use
  Company Number: DE200609006235

PATIENT
  Age: 41 Year
  Sex: Male
  Weight: 86 kg

DRUGS (3)
  1. ZYPREXA [Suspect]
     Indication: BIPOLAR DISORDER
     Dosage: 10 MG, DAILY (1/D), ORAL
     Route: 048
  2. QUILONUM - SLOW RELEASE (LITHIUM CARBONATE) [Concomitant]
  3. TREVILOR - SLOW RELEASE (VENLAFAXINE HYDROCHLORIDE) [Concomitant]

REACTIONS (1)
  - PELVIC VENOUS THROMBOSIS [None]
